FAERS Safety Report 17495135 (Version 1)
Quarter: 2020Q1

REPORT INFORMATION
  Report Type: Spontaneous
  Country: FR (occurrence: FR)
  Receive Date: 20200303
  Receipt Date: 20200303
  Transmission Date: 20200409
  Serious: Yes (Other)
  Sender: FDA-Public Use
  Company Number: FR-CANTON LABORATORIES, LLC-2081241

PATIENT
  Age: 18 Year
  Sex: Male

DRUGS (3)
  1. NAPROSYN [Suspect]
     Active Substance: NAPROXEN
     Indication: PRODUCT USED FOR UNKNOWN INDICATION
     Route: 045
     Dates: start: 2019, end: 20200118
  2. PARACETAMOL [Suspect]
     Active Substance: ACETAMINOPHEN
     Route: 045
     Dates: start: 2019, end: 20200118
  3. TRAMADOL. [Suspect]
     Active Substance: TRAMADOL
     Route: 045
     Dates: start: 2019, end: 20200118

REACTIONS (1)
  - Intentional product misuse [Recovered/Resolved]

NARRATIVE: CASE EVENT DATE: 2019
